FAERS Safety Report 6927376-5 (Version None)
Quarter: 2010Q3

REPORT INFORMATION
  Report Type: 
  Country: None (occurrence: None)
  Receive Date: 20100817
  Receipt Date: 20100810
  Transmission Date: 20110219
  Serious: No
  Sender: FDA-Public Use
  Company Number: US-BIOGENIDEC-2010BI027959

PATIENT
  Age: 31 Year
  Sex: Female

DRUGS (3)
  1. TYSABRI [Suspect]
     Indication: MULTIPLE SCLEROSIS
     Route: 030
     Dates: start: 20060816, end: 20070919
  2. TYSABRI [Suspect]
     Route: 030
     Dates: start: 20090914
  3. AVONEX [Concomitant]
     Indication: MULTIPLE SCLEROSIS
     Route: 030

REACTIONS (1)
  - INFUSION SITE PAIN [None]
